FAERS Safety Report 7559972-9 (Version None)
Quarter: 2011Q2

REPORT INFORMATION
  Report Type: 
  Country: None (occurrence: None)
  Receive Date: 20110621
  Receipt Date: 20110608
  Transmission Date: 20111010
  Serious: Yes (Other)
  Sender: FDA-Public Use
  Company Number: PHFR2011GB01508

PATIENT
  Sex: Female

DRUGS (10)
  1. CLOZAPINE [Suspect]
     Dosage: 225 MG NOCTE
     Route: 048
     Dates: start: 20101101
  2. SIMVASTATIN [Concomitant]
     Dosage: 20 MG, QD
     Route: 048
  3. PAROXETINE HCL [Concomitant]
     Dosage: 20 MG, DAILY
     Route: 048
  4. LANSOPRAZOLE [Concomitant]
     Dosage: 30 MG, DAILY
  5. ASCORBIC ACID [Concomitant]
     Dosage: 500 MG, DAILY
  6. METFORMIN HCL [Concomitant]
     Dosage: 500 MG, BID
     Route: 048
  7. ALENDRONIC ACID [Concomitant]
     Dosage: 70 UG, QW
     Route: 048
  8. ADCAL [Concomitant]
     Dosage: UNK
  9. NAPROXEN [Concomitant]
     Dosage: 500 MG, DAILY
  10. CLOZAPINE [Suspect]
     Route: 048
     Dates: start: 20101027

REACTIONS (6)
  - ANTIPSYCHOTIC DRUG LEVEL BELOW THERAPEUTIC [None]
  - MULTIPLE FRACTURES [None]
  - OSTEOPOROSIS [None]
  - HAEMOGLOBIN DECREASED [None]
  - SPINAL FRACTURE [None]
  - ANAEMIA [None]
